FAERS Safety Report 12952888 (Version 2)
Quarter: 2016Q4

REPORT INFORMATION
  Report Type: Spontaneous
  Country: ES (occurrence: ES)
  Receive Date: 20161117
  Receipt Date: 20161125
  Transmission Date: 20170207
  Serious: Yes (Life-Threatening, Other)
  Sender: FDA-Public Use
  Company Number: ES-009507513-1609ESP009748

PATIENT
  Age: 55 Year
  Sex: Male

DRUGS (9)
  1. DORMICUM (MIDAZOLAM) [Concomitant]
     Active Substance: MIDAZOLAM HYDROCHLORIDE
     Indication: INDUCTION OF ANAESTHESIA
  2. FENTANEST [Concomitant]
     Active Substance: FENTANYL CITRATE
     Indication: INDUCTION OF ANAESTHESIA
  3. DIPRIVAN [Concomitant]
     Active Substance: PROPOFOL
     Indication: NEUROMUSCULAR BLOCKING THERAPY
     Dosage: 200 MG, UNK
  4. ATROPINE. [Concomitant]
     Active Substance: ATROPINE
     Indication: INDUCTION OF ANAESTHESIA
     Dosage: 0.5 MG, UNK
     Route: 042
     Dates: start: 20140312, end: 20140312
  5. ESMERON [Suspect]
     Active Substance: ROCURONIUM BROMIDE
     Indication: ANAESTHESIA
     Dosage: 790 MG, UNK
     Route: 042
     Dates: start: 20140312, end: 20140312
  6. DORMICUM (MIDAZOLAM) [Concomitant]
     Active Substance: MIDAZOLAM HYDROCHLORIDE
     Indication: NEUROMUSCULAR BLOCKING THERAPY
     Dosage: 2 MG, UNK
     Route: 042
     Dates: start: 20140312, end: 20140312
  7. ESMERON [Suspect]
     Active Substance: ROCURONIUM BROMIDE
     Indication: NEUROMUSCULAR BLOCKADE
  8. FENTANEST [Concomitant]
     Active Substance: FENTANYL CITRATE
     Indication: NEUROMUSCULAR BLOCKING THERAPY
     Dosage: 15 MG, UNK
     Route: 042
     Dates: start: 20140312, end: 20140312
  9. CEFUROXIME. [Concomitant]
     Active Substance: CEFUROXIME
     Dosage: 250 MG, UNK

REACTIONS (1)
  - Anaphylactic reaction [Recovered/Resolved]

NARRATIVE: CASE EVENT DATE: 20140312
